FAERS Safety Report 4837207-5 (Version None)
Quarter: 2005Q4

REPORT INFORMATION
  Report Type: 
  Country: None (occurrence: None)
  Receive Date: 20051122
  Receipt Date: 20051110
  Transmission Date: 20060501
  Serious: Yes (Hospitalization, Other)
  Sender: FDA-Public Use
  Company Number: 2005-02349

PATIENT
  Age: 57 Year
  Sex: Female
  Weight: 57.7 kg

DRUGS (2)
  1. VELCADE [Suspect]
     Indication: MULTIPLE MYELOMA
     Dosage: 1.30 MG/M2, 2/WEEK, INTRAVENOUS
     Route: 042
     Dates: start: 20050628, end: 20051024
  2. SCIO-469 [Suspect]
     Indication: MULTIPLE MYELOMA
     Dosage: 60.00 MG, TID, ORAL
     Route: 048
     Dates: start: 20050628, end: 20051026

REACTIONS (6)
  - CLOSTRIDIUM COLITIS [None]
  - DEHYDRATION [None]
  - GASTRIC ULCER [None]
  - GASTROINTESTINAL HAEMORRHAGE [None]
  - LISTERIOSIS [None]
  - PYREXIA [None]
